FAERS Safety Report 7367699-1 (Version None)
Quarter: 2011Q1

REPORT INFORMATION
  Report Type: 
  Country: None (occurrence: None)
  Receive Date: 20110322
  Receipt Date: 20110320
  Transmission Date: 20110831
  Serious: Yes (Disabling)
  Sender: FDA-Public Use
  Company Number: US-PFIZER INC-2011052759

PATIENT
  Sex: Female
  Weight: 68.481 kg

DRUGS (16)
  1. SIMVASTATIN [Concomitant]
     Indication: BLOOD CHOLESTEROL INCREASED
     Dosage: 40 MG, UNK
  2. LEXAPRO [Concomitant]
     Indication: ANXIETY
  3. OMEPRAZOLE [Concomitant]
     Indication: BARRETT'S OESOPHAGUS
     Dosage: 20 MG, UNK
  4. FLUTICASONE [Concomitant]
     Dosage: 50 UG, UNK
     Route: 055
  5. ACETYLSALICYLIC ACID [Concomitant]
  6. ABILIFY [Concomitant]
     Indication: ANXIETY
  7. IBUPROFEN [Concomitant]
     Indication: OSTEOARTHRITIS
     Dosage: 800 MG, AS NEEDED
  8. VITAMIN D [Concomitant]
     Dosage: UNK
  9. CHANTIX [Suspect]
     Indication: SMOKING CESSATION THERAPY
     Dosage: 0.5 MG, 1X/DAY
     Route: 048
     Dates: start: 20110301
  10. LEXAPRO [Concomitant]
     Indication: DEPRESSION
     Dosage: 20 MG, DAILY
  11. MULTI-VITAMINS [Concomitant]
     Dosage: UNK, DAILY
  12. CHANTIX [Suspect]
     Dosage: 1 MG, 2X/DAY
     Route: 048
     Dates: start: 20110301
  13. OMEPRAZOLE [Concomitant]
     Dosage: 40 MG, DAILY
  14. ACETAMINOPHEN [Concomitant]
     Indication: OSTEOARTHRITIS
     Dosage: UNK, AS NEEDED
  15. CHANTIX [Suspect]
     Dosage: UNK
     Route: 048
     Dates: start: 20110301
  16. ABILIFY [Concomitant]
     Indication: DEPRESSION
     Dosage: 5 MG, UNK

REACTIONS (8)
  - DIZZINESS [None]
  - ANGER [None]
  - ABNORMAL BEHAVIOUR [None]
  - HEADACHE [None]
  - FEAR [None]
  - ILL-DEFINED DISORDER [None]
  - RESTLESSNESS [None]
  - NERVOUSNESS [None]
